FAERS Safety Report 13347748 (Version 2)
Quarter: 2017Q2

REPORT INFORMATION
  Report Type: Spontaneous
  Country: FR (occurrence: FR)
  Receive Date: 20170317
  Receipt Date: 20170403
  Transmission Date: 20170830
  Serious: Yes (Death, Hospitalization)
  Sender: FDA-Public Use
  Company Number: FR-BAUSCH-BL-2017-007038

PATIENT
  Age: 35 Year
  Sex: Female

DRUGS (7)
  1. AMIKLIN [Concomitant]
     Active Substance: AMIKACIN SULFATE
     Indication: INFECTION
     Route: 042
     Dates: start: 20170208
  2. CANCIDAS [Concomitant]
     Active Substance: CASPOFUNGIN ACETATE
     Indication: INFECTION
     Route: 042
     Dates: start: 20170213
  3. AMMONUL [Suspect]
     Active Substance: SODIUM BENZOATE\SODIUM PHENYLACETATE
     Indication: HYPERAMMONAEMIA
     Route: 042
     Dates: start: 20170216
  4. TAZOCILLINE [Concomitant]
     Active Substance: PIPERACILLIN SODIUM\TAZOBACTAM SODIUM
     Indication: INFECTION
     Route: 042
     Dates: start: 20170208
  5. CARBAGLU [Concomitant]
     Active Substance: CARGLUMIC ACID
     Indication: HYPERAMMONAEMIA
     Dosage: PER OS
     Route: 048
     Dates: start: 20170213
  6. ARGININE [Concomitant]
     Active Substance: ARGININE
     Indication: HYPERAMMONAEMIA
     Route: 042
     Dates: start: 20170211
  7. LEVOCARNIL [Concomitant]
     Active Substance: LEVOCARNITINE
     Indication: PRODUCT USED FOR UNKNOWN INDICATION
     Route: 042
     Dates: start: 20170208

REACTIONS (2)
  - Septic shock [Fatal]
  - Coma [Unknown]

NARRATIVE: CASE EVENT DATE: 20170218
